FAERS Safety Report 19845571 (Version 5)
Quarter: 2022Q1

REPORT INFORMATION
  Report Type: Report from Study
  Country: US (occurrence: US)
  Receive Date: 20210917
  Receipt Date: 20220128
  Transmission Date: 20220423
  Serious: Yes (Hospitalization, Other)
  Sender: FDA-Public Use
  Company Number: US-INSMED, INC.-2021-09435-US

PATIENT
  Age: 51 Year
  Sex: Female

DRUGS (3)
  1. ARIKAYCE [Suspect]
     Active Substance: AMIKACIN
     Indication: Infective exacerbation of bronchiectasis
     Dosage: 590 MILLIGRAM, QD
     Route: 055
     Dates: start: 201906, end: 202108
  2. ARIKAYCE [Suspect]
     Active Substance: AMIKACIN
     Dosage: 590 MILLIGRAM, QD
     Route: 055
     Dates: start: 20211208, end: 202112
  3. AMIKACIN [Concomitant]
     Active Substance: AMIKACIN
     Indication: Product used for unknown indication
     Dosage: UNK
     Route: 017
     Dates: start: 2021

REACTIONS (7)
  - Lung disorder [Unknown]
  - Hospitalisation [Unknown]
  - Pleurisy [Unknown]
  - Drug intolerance [Unknown]
  - Cough [Unknown]
  - Off label use [Unknown]
  - Therapy interrupted [Unknown]

NARRATIVE: CASE EVENT DATE: 20211201
